FAERS Safety Report 15484396 (Version 1)
Quarter: 2018Q4

REPORT INFORMATION
  Report Type: Spontaneous
  Country: US (occurrence: US)
  Receive Date: 20181010
  Receipt Date: 20181010
  Transmission Date: 20190205
  Serious: Yes (Other)
  Sender: FDA-Public Use
  Company Number: US-TEVA-2018-US-961210

PATIENT
  Age: 30 Year
  Sex: Female

DRUGS (1)
  1. TEVA PROGESTERONE [Suspect]
     Active Substance: PROGESTERONE
     Route: 065

REACTIONS (9)
  - Haematemesis [Unknown]
  - Loss of consciousness [Unknown]
  - Refraction disorder [Unknown]
  - Dyspareunia [Unknown]
  - Dizziness [Unknown]
  - Oropharyngeal pain [Unknown]
  - Speech disorder [Unknown]
  - Fatigue [Unknown]
  - Vomiting [Unknown]
